FAERS Safety Report 4563311-5 (Version None)
Quarter: 2005Q1

REPORT INFORMATION
  Report Type: 
  Country: None (occurrence: None)
  Receive Date: 20050128
  Receipt Date: 20031222
  Transmission Date: 20050727
  Serious: No
  Sender: FDA-Public Use
  Company Number: US-GLAXOSMITHKLINE-A0443936A

PATIENT
  Age: 16 Year
  Sex: Male

DRUGS (3)
  1. WELLBUTRIN [Suspect]
     Indication: ILL-DEFINED DISORDER
     Route: 048
  2. GEODON [Concomitant]
  3. LEXAPRO [Concomitant]
     Route: 065

REACTIONS (2)
  - DYSTONIA [None]
  - SWOLLEN TONGUE [None]
